FAERS Safety Report 25885333 (Version 1)
Quarter: 2025Q4

REPORT INFORMATION
  Report Type: Spontaneous
  Country: US (occurrence: US)
  Receive Date: 20251006
  Receipt Date: 20251006
  Transmission Date: 20260118
  Serious: No
  Sender: SANOFI AVENTIS
  Company Number: US-SA-2025SA296067

PATIENT
  Sex: Female

DRUGS (1)
  1. ALTUVIIIO [Suspect]
     Active Substance: EFANESOCTOCOG ALFA
     Dosage: 3500 IU
     Route: 042

REACTIONS (3)
  - Cough [Unknown]
  - Dyspnoea [Unknown]
  - Flushing [Unknown]
